FAERS Safety Report 14824801 (Version 1)
Quarter: 2018Q2

REPORT INFORMATION
  Report Type: Report from Study
  Country: US (occurrence: US)
  Receive Date: 20180430
  Receipt Date: 20180430
  Transmission Date: 20180711
  Serious: Yes (Hospitalization)
  Sender: FDA-Public Use
  Company Number: US-ROCHE-1786343

PATIENT
  Age: 66 Year
  Sex: Female

DRUGS (21)
  1. AMLODIPINE [Concomitant]
     Active Substance: AMLODIPINE BESYLATE
     Route: 048
     Dates: start: 2011, end: 201503
  2. PRIMROSE [Concomitant]
     Route: 048
     Dates: start: 2010, end: 201503
  3. PLAVIX [Concomitant]
     Active Substance: CLOPIDOGREL BISULFATE
     Route: 048
     Dates: start: 2011
  4. PROLENSA [Concomitant]
     Active Substance: BROMFENAC SODIUM
     Route: 065
     Dates: start: 20131121, end: 20140117
  5. NOVOLOG [Concomitant]
     Active Substance: INSULIN ASPART
     Dosage: SCALE PEN
     Route: 065
     Dates: start: 2010
  6. AMOXICILLIN. [Concomitant]
     Active Substance: AMOXICILLIN
     Route: 048
     Dates: start: 20130318, end: 201407
  7. ABX [Concomitant]
     Route: 065
     Dates: start: 20131121, end: 20131128
  8. RANIBIZUMAB. [Suspect]
     Active Substance: RANIBIZUMAB
     Indication: NEOVASCULAR AGE-RELATED MACULAR DEGENERATION
     Dosage: PRN
     Route: 050
     Dates: start: 20131018, end: 20160504
  9. PREDNISOLONE. [Concomitant]
     Active Substance: PREDNISOLONE
     Route: 065
     Dates: start: 20131121, end: 20140117
  10. ASPIRIN. [Concomitant]
     Active Substance: ASPIRIN
     Route: 048
     Dates: start: 2011
  11. FISH OIL [Concomitant]
     Active Substance: FISH OIL
     Dosage: 1 TAB
     Route: 048
     Dates: start: 2010, end: 201503
  12. VITAMIN E [Concomitant]
     Active Substance: .ALPHA.-TOCOPHEROL
     Route: 065
     Dates: start: 2010
  13. METOPROLOL. [Concomitant]
     Active Substance: METOPROLOL
     Indication: HYPERTENSION
     Dosage: 1 TABLET
     Route: 048
     Dates: start: 201503
  14. AMPICILLIN [Concomitant]
     Active Substance: AMPICILLIN
     Route: 048
     Dates: start: 20130306, end: 201407
  15. GLIMEPIRIDE. [Concomitant]
     Active Substance: GLIMEPIRIDE
     Route: 048
     Dates: start: 201112
  16. LEVAQUIN [Concomitant]
     Active Substance: LEVOFLOXACIN
     Route: 042
     Dates: start: 20121225, end: 201407
  17. HYDROCHLOROTHIAZIDE. [Concomitant]
     Active Substance: HYDROCHLOROTHIAZIDE
     Route: 048
     Dates: start: 2011, end: 201503
  18. VITAMIN B12 [Concomitant]
     Active Substance: CYANOCOBALAMIN
     Dosage: 1 TAB
     Route: 048
     Dates: start: 2010, end: 201503
  19. LEVAQUIN [Concomitant]
     Active Substance: LEVOFLOXACIN
     Dosage: EOD
     Route: 048
     Dates: start: 20121231, end: 201407
  20. COMBIGAN [Concomitant]
     Active Substance: BRIMONIDINE TARTRATE\TIMOLOL MALEATE
     Dosage: 1 TIME
     Route: 065
     Dates: start: 20140204, end: 20140204
  21. LISINOPRIL. [Concomitant]
     Active Substance: LISINOPRIL
     Indication: HYPERTENSION
     Route: 048
     Dates: start: 20150330

REACTIONS (3)
  - Kidney infection [Unknown]
  - Blood creatine increased [Unknown]
  - Herpes zoster [Unknown]

NARRATIVE: CASE EVENT DATE: 20160518
